FAERS Safety Report 17344748 (Version 7)
Quarter: 2023Q1

REPORT INFORMATION
  Report Type: Spontaneous
  Country: JP (occurrence: JP)
  Receive Date: 20200129
  Receipt Date: 20230303
  Transmission Date: 20230417
  Serious: Yes (Hospitalization, Other)
  Sender: FDA-Public Use
  Company Number: None

PATIENT
  Age: 48 Year
  Sex: Male
  Weight: 100 kg

DRUGS (5)
  1. TREMFYA [Suspect]
     Active Substance: GUSELKUMAB
     Indication: Psoriasis
     Dosage: LAST ADMINISTERED ON 30-JUL-2020
     Route: 058
     Dates: start: 20191205
  2. TREMFYA [Suspect]
     Active Substance: GUSELKUMAB
     Dosage: 06-FEB-2020 (ALSO REPORTED AS 05-FEB-2020)
     Route: 058
     Dates: start: 20191205, end: 20191205
  3. TREMFYA [Suspect]
     Active Substance: GUSELKUMAB
     Route: 058
     Dates: start: 20200730
  4. TREMFYA [Suspect]
     Active Substance: GUSELKUMAB
     Route: 058
     Dates: start: 20221227
  5. TREMFYA [Suspect]
     Active Substance: GUSELKUMAB
     Route: 058
     Dates: start: 20230221

REACTIONS (3)
  - Pancreatitis acute [Recovered/Resolved]
  - COVID-19 [Unknown]
  - Furuncle [Recovered/Resolved]

NARRATIVE: CASE EVENT DATE: 20200106
